FAERS Safety Report 18714251 (Version 3)
Quarter: 2021Q1

REPORT INFORMATION
  Report Type: Spontaneous
  Country: US (occurrence: US)
  Receive Date: 20210107
  Receipt Date: 20210120
  Transmission Date: 20210419
  Serious: Yes (Death, Other)
  Sender: FDA-Public Use
  Company Number: US-SA-2021SA004620

PATIENT
  Age: 61 Year
  Sex: Male

DRUGS (31)
  1. INSULIN LISPRO [Suspect]
     Active Substance: INSULIN LISPRO
     Route: 048
  2. SALICYLATES NOS [Suspect]
     Active Substance: UNSPECIFIED INGREDIENT
     Route: 051
  3. METFORMIN HYDROCHLORIDE. [Suspect]
     Active Substance: METFORMIN HYDROCHLORIDE
     Dosage: INGESTION
     Route: 048
  4. METFORMIN HYDROCHLORIDE. [Suspect]
     Active Substance: METFORMIN HYDROCHLORIDE
     Dosage: UNK
     Route: 051
  5. INSULIN GLARGINE [Suspect]
     Active Substance: INSULIN GLARGINE
     Dosage: UNK
     Route: 048
  6. INSULIN GLARGINE [Suspect]
     Active Substance: INSULIN GLARGINE
     Route: 051
  7. HYDRALAZINE [Suspect]
     Active Substance: HYDRALAZINE HYDROCHLORIDE
     Dosage: UNK
     Route: 051
  8. ALCOHOL. [Suspect]
     Active Substance: ALCOHOL
     Indication: PRODUCT USED FOR UNKNOWN INDICATION
     Dosage: UNK
     Route: 048
  9. AMLODIPINE [Suspect]
     Active Substance: AMLODIPINE BESYLATE
     Dosage: UNK
     Route: 051
  10. CLONIDINE. [Suspect]
     Active Substance: CLONIDINE
     Route: 051
  11. ALLOPURINOL. [Suspect]
     Active Substance: ALLOPURINOL
     Dosage: UNK
     Route: 048
  12. HYDRALAZINE [Suspect]
     Active Substance: HYDRALAZINE HYDROCHLORIDE
     Dosage: UNK
     Route: 048
  13. AMLODIPINE [Suspect]
     Active Substance: AMLODIPINE BESYLATE
     Route: 048
  14. CLONIDINE. [Suspect]
     Active Substance: CLONIDINE
     Dosage: UNK
     Route: 048
  15. OMEPRAZOLE. [Suspect]
     Active Substance: OMEPRAZOLE
     Route: 048
  16. DILTIAZEM HYDROCHLORIDE. [Suspect]
     Active Substance: DILTIAZEM HYDROCHLORIDE
     Indication: PRODUCT USED FOR UNKNOWN INDICATION
     Dosage: UNK
     Route: 048
  17. INSULIN LISPRO [Suspect]
     Active Substance: INSULIN LISPRO
     Dosage: UNK
     Route: 051
  18. LISINOPRIL. [Suspect]
     Active Substance: LISINOPRIL
     Dosage: UNK
     Route: 048
  19. LISINOPRIL. [Suspect]
     Active Substance: LISINOPRIL
     Dosage: UNK
     Route: 051
  20. ROSUVASTATIN. [Suspect]
     Active Substance: ROSUVASTATIN
     Route: 048
  21. ALLOPURINOL. [Suspect]
     Active Substance: ALLOPURINOL
     Route: 051
  22. HYDRALAZINE [Suspect]
     Active Substance: HYDRALAZINE HYDROCHLORIDE
     Route: 051
  23. DILTIAZEM HYDROCHLORIDE. [Suspect]
     Active Substance: DILTIAZEM HYDROCHLORIDE
     Dosage: UNK
     Route: 051
  24. DIPHENHYDRAMINE. [Suspect]
     Active Substance: DIPHENHYDRAMINE
     Indication: PRODUCT USED FOR UNKNOWN INDICATION
     Dosage: UNK
     Route: 048
  25. DULOXETINE HYDROCHLORIDE. [Suspect]
     Active Substance: DULOXETINE HYDROCHLORIDE
     Dosage: UNK
     Route: 051
  26. ROSUVASTATIN. [Suspect]
     Active Substance: ROSUVASTATIN
     Dosage: UNK
     Route: 051
  27. OMEPRAZOLE. [Suspect]
     Active Substance: OMEPRAZOLE
     Dosage: UNK
     Route: 051
  28. SALICYLATES NOS [Suspect]
     Active Substance: UNSPECIFIED INGREDIENT
     Dosage: UNK
     Route: 048
  29. ATENOLOL. [Suspect]
     Active Substance: ATENOLOL
     Indication: PRODUCT USED FOR UNKNOWN INDICATION
     Dosage: UNK
     Route: 048
  30. METFORMIN HYDROCHLORIDE. [Suspect]
     Active Substance: METFORMIN HYDROCHLORIDE
     Route: 051
  31. DULOXETINE HYDROCHLORIDE. [Suspect]
     Active Substance: DULOXETINE HYDROCHLORIDE
     Route: 048

REACTIONS (1)
  - Completed suicide [Fatal]
